FAERS Safety Report 5323404-1 (Version None)
Quarter: 2007Q2

REPORT INFORMATION
  Report Type: 
  Country: None (occurrence: None)
  Receive Date: 20070514
  Receipt Date: 20070508
  Transmission Date: 20071010
  Serious: Yes (Other)
  Sender: FDA-Public Use
  Company Number: US-BAYER-200711442BCC

PATIENT
  Sex: Female
  Weight: 4.989 kg

DRUGS (4)
  1. ASPIRIN [Suspect]
     Indication: CARDIAC DISORDER
     Dosage: AS USED: 20.25 MG  UNIT DOSE: 20.25 MG
     Route: 048
  2. LASIX [Concomitant]
  3. PRILOSEC [Concomitant]
  4. FUROSEMIDE [Concomitant]

REACTIONS (2)
  - HYPOVENTILATION [None]
  - UPPER RESPIRATORY TRACT INFLAMMATION [None]
